FAERS Safety Report 7268640-2 (Version None)
Quarter: 2011Q1

REPORT INFORMATION
  Report Type: 
  Country: None (occurrence: None)
  Receive Date: 20110201
  Receipt Date: 20110124
  Transmission Date: 20110831
  Serious: Yes (Other)
  Sender: FDA-Public Use
  Company Number: NL-BAYER-2011-007807

PATIENT
  Age: 20 Year
  Sex: Female

DRUGS (1)
  1. MIRENA [Suspect]
     Indication: CONTRACEPTION
     Dosage: 20 ?G, CONT
     Dates: start: 20101210

REACTIONS (5)
  - HALLUCINATION [None]
  - DEPRESSED MOOD [None]
  - MOOD SWINGS [None]
  - AGGRESSION [None]
  - SUICIDAL IDEATION [None]
